FAERS Safety Report 4318138-6 (Version None)
Quarter: 2004Q1

REPORT INFORMATION
  Report Type: 
  Country: None (occurrence: None)
  Receive Date: 20040317
  Receipt Date: 20040309
  Transmission Date: 20041129
  Serious: Yes (Other)
  Sender: FDA-Public Use
  Company Number: US-GLAXOSMITHKLINE-A0502003A

PATIENT
  Age: 54 Year
  Sex: Male

DRUGS (5)
  1. ABACAVIR [Suspect]
     Indication: HIV INFECTION
     Route: 048
     Dates: start: 20030201, end: 20030201
  2. EFAVIRENZ [Suspect]
     Indication: DRUG USE FOR UNKNOWN INDICATION
     Route: 065
     Dates: start: 20030201, end: 20030301
  3. TENOFOVIR [Suspect]
     Indication: DRUG USE FOR UNKNOWN INDICATION
     Route: 065
     Dates: start: 20030201
  4. NEVIRAPINE [Suspect]
     Indication: DRUG USE FOR UNKNOWN INDICATION
     Route: 065
     Dates: start: 20030301
  5. LOPINAVIR + RITONAVIR [Suspect]
     Indication: DRUG USE FOR UNKNOWN INDICATION
     Route: 048
     Dates: start: 20030201

REACTIONS (8)
  - ABNORMAL DREAMS [None]
  - DIARRHOEA [None]
  - HEADACHE [None]
  - MYALGIA [None]
  - PYREXIA [None]
  - RHINORRHOEA [None]
  - STAPHYLOCOCCAL INFECTION [None]
  - SUBCUTANEOUS ABSCESS [None]
